FAERS Safety Report 5802945-4 (Version None)
Quarter: 2008Q3

REPORT INFORMATION
  Report Type: 
  Country: None (occurrence: None)
  Receive Date: 20080708
  Receipt Date: 20080701
  Transmission Date: 20090109
  Serious: Yes (Other)
  Sender: FDA-Public Use
  Company Number: US-ROCHE-573392

PATIENT
  Sex: Male
  Weight: 70.3 kg

DRUGS (1)
  1. CAPECITABINE [Suspect]
     Dosage: DOSAGE: 4 TABLETS OF 500MG AND 2 TABLETS OF 150MG
     Route: 065
     Dates: start: 20080205, end: 20080601

REACTIONS (2)
  - MALIGNANT NEOPLASM PROGRESSION [None]
  - OESOPHAGEAL CARCINOMA [None]
